FAERS Safety Report 13629952 (Version 1)
Quarter: 2017Q2

REPORT INFORMATION
  Report Type: Spontaneous
  Country: US (occurrence: US)
  Receive Date: 20170531
  Receipt Date: 20170531
  Transmission Date: 20170830
  Serious: No
  Sender: FDA-Public Use
  Company Number: US-ASTELLAS-1261438

PATIENT
  Sex: Male

DRUGS (6)
  1. LACTULOSE. [Concomitant]
     Active Substance: LACTULOSE
  2. HYDROCODONE/ACETAMINOPHEN [Concomitant]
     Active Substance: ACETAMINOPHEN\HYDROCODONE
  3. AVODART [Concomitant]
     Active Substance: DUTASTERIDE
  4. TARCEVA [Suspect]
     Active Substance: ERLOTINIB HYDROCHLORIDE
     Indication: PANCREATIC CARCINOMA
     Route: 048
     Dates: start: 20130621
  5. BENAZEPRIL AND HYDROCHLOROTHIAZIDE [Concomitant]
     Active Substance: BENAZEPRIL HYDROCHLORIDE\HYDROCHLOROTHIAZIDE
  6. GLUCOSAMINE/CHONDROITIN [Concomitant]
     Dosage: DRUG REPORTED AS GLUCOSAMINE CHONDROITIN PLUS
     Route: 065

REACTIONS (2)
  - Nausea [Unknown]
  - Cough [Unknown]
